FAERS Safety Report 25964746 (Version 1)
Quarter: 2025Q4

REPORT INFORMATION
  Report Type: Spontaneous
  Country: US (occurrence: US)
  Receive Date: 20251027
  Receipt Date: 20251027
  Transmission Date: 20260118
  Serious: No
  Sender: BRISTOL-MYERS SQUIBB COMPANY
  Company Number: US-BRISTOL-MYERS SQUIBB COMPANY-2025-145901

PATIENT
  Age: 59 Year
  Sex: Female

DRUGS (1)
  1. ORENCIA [Suspect]
     Active Substance: ABATACEPT
     Indication: Rheumatoid arthritis
     Route: 058
     Dates: start: 202402

REACTIONS (5)
  - Lip swelling [Unknown]
  - Lip erythema [Unknown]
  - Mouth swelling [Unknown]
  - Oral mucosal erythema [Unknown]
  - Irritability [Unknown]

NARRATIVE: CASE EVENT DATE: 20250901
